FAERS Safety Report 8782613 (Version 3)
Quarter: 2012Q4

REPORT INFORMATION
  Report Type: 
  Country: US (occurrence: US)
  Receive Date: 20120913
  Receipt Date: 20121228
  Transmission Date: 20130627
  Serious: No
  Sender: FDA-Public Use
  Company Number: US-VERTEX PHARMACEUTICAL INC.-AE-2012-010629

PATIENT
  Age: 49 Year
  Sex: Male
  Weight: 109 kg

DRUGS (5)
  1. VX-950 (TELAPREVIR) [Suspect]
     Indication: HEPATITIS C
     Dosage: 750 mg, tid
     Route: 048
     Dates: start: 2012, end: 20121031
  2. RIBASPHERE [Suspect]
     Indication: HEPATITIS C
     Dosage: 800 mg, evening
     Route: 048
     Dates: start: 2012, end: 20121031
  3. PEGINTRON                          /01543001/ [Suspect]
     Indication: HEPATITIS C
     Dosage: 150 ?g, weekly
     Route: 058
     Dates: start: 2012, end: 20121031
  4. CELEBREX [Concomitant]
     Route: 048
  5. HYDROCODON-ACETAMINOPHEN 5 [Concomitant]
     Route: 048

REACTIONS (3)
  - Mood swings [Unknown]
  - Fatigue [Unknown]
  - Drug ineffective [Unknown]
